FAERS Safety Report 6357077-6 (Version None)
Quarter: 2009Q3

REPORT INFORMATION
  Report Type: 
  Country: None (occurrence: None)
  Receive Date: 20090910
  Receipt Date: 20090827
  Transmission Date: 20100115
  Serious: Yes (Other)
  Sender: FDA-Public Use
  Company Number: 2009S1006967

PATIENT
  Age: 58 Year
  Sex: Female

DRUGS (1)
  1. PHOSPHOSODA FLAVOR NOT SPECIFIED [Suspect]
     Indication: BOWEL PREPARATION
     Dosage: PO
     Route: 048
     Dates: start: 20080514, end: 20090514

REACTIONS (5)
  - BLOOD PRESSURE INCREASED [None]
  - HYPOTENSION [None]
  - NEPHROPATHY [None]
  - RENAL FAILURE ACUTE [None]
  - RENAL TUBULAR NECROSIS [None]
